FAERS Safety Report 14648764 (Version 3)
Quarter: 2018Q1

REPORT INFORMATION
  Report Type: Spontaneous
  Country: CA (occurrence: CA)
  Receive Date: 20180316
  Receipt Date: 20180321
  Transmission Date: 20180509
  Serious: Yes (Other)
  Sender: FDA-Public Use
  Company Number: CA-PFIZER INC-2018102242

PATIENT
  Age: 63 Year
  Sex: Male

DRUGS (5)
  1. ETANERCEPT [Suspect]
     Active Substance: ETANERCEPT
     Indication: RHEUMATOID ARTHRITIS
     Dosage: 50 MG, WEEKLY
     Route: 058
     Dates: start: 20140817, end: 20171021
  2. BRENZYS [Suspect]
     Active Substance: ETANERCEPT
     Dosage: UNK
     Dates: start: 20140817, end: 20171021
  3. SALAZOPYRIN [Suspect]
     Active Substance: SULFASALAZINE
     Indication: RHEUMATOID ARTHRITIS
     Dosage: 1000 MG, 2X/DAY
     Route: 048
     Dates: start: 20140626
  4. CELEBREX [Suspect]
     Active Substance: CELECOXIB
     Indication: ARTHRITIS
     Dosage: UNK UNK, AS NEEDED
  5. HYDROXYCHLOROQUINE [Suspect]
     Active Substance: HYDROXYCHLOROQUINE
     Indication: RHEUMATOID ARTHRITIS
     Dosage: 400 MG, DAILY
     Route: 048
     Dates: start: 20141001

REACTIONS (10)
  - Seronegative arthritis [Unknown]
  - Drug intolerance [Unknown]
  - Cerebrovascular accident [Unknown]
  - Rash [Unknown]
  - Herpes zoster [Unknown]
  - Liver disorder [Unknown]
  - Treatment failure [Unknown]
  - Myocardial infarction [Unknown]
  - Drug ineffective [Unknown]
  - Polyarthritis [Unknown]
